FAERS Safety Report 4445409-5 (Version None)
Quarter: 2004Q3

REPORT INFORMATION
  Report Type: 
  Country: None (occurrence: None)
  Receive Date: 20040730
  Receipt Date: 20030708
  Transmission Date: 20050211
  Serious: Yes (Other)
  Sender: FDA-Public Use
  Company Number: 2003-07-0987

PATIENT
  Age: 54 Year

DRUGS (1)
  1. INTRON A [Suspect]

REACTIONS (1)
  - AMNESIA [None]
